FAERS Safety Report 11260595 (Version 1)
Quarter: 2015Q3

REPORT INFORMATION
  Report Type: Spontaneous
  Country: US (occurrence: US)
  Receive Date: 20150710
  Receipt Date: 20150710
  Transmission Date: 20151125
  Serious: No
  Sender: FDA-Public Use
  Company Number: US-TEVA-565355USA

PATIENT
  Sex: Female
  Weight: 140 kg

DRUGS (4)
  1. SIMVASTATIN. [Suspect]
     Active Substance: SIMVASTATIN
     Route: 065
  2. HYDROCODONE W/ACETAMINOPHEN [Suspect]
     Active Substance: ACETAMINOPHEN\HYDROCODONE BITARTRATE
     Indication: ARTHRALGIA
     Dosage: 5/325 MG
  3. LISINOPRIL. [Suspect]
     Active Substance: LISINOPRIL
     Route: 065
  4. LYRICA [Suspect]
     Active Substance: PREGABALIN
     Indication: NEUROPATHY PERIPHERAL
     Dosage: 225 MILLIGRAM DAILY;

REACTIONS (6)
  - Burning sensation [Not Recovered/Not Resolved]
  - Drug ineffective [Unknown]
  - Pain [Not Recovered/Not Resolved]
  - Blood potassium increased [Unknown]
  - Blood pressure abnormal [Unknown]
  - Pain in extremity [Not Recovered/Not Resolved]
